FAERS Safety Report 4590944-2 (Version None)
Quarter: 2005Q1

REPORT INFORMATION
  Report Type: 
  Country: None (occurrence: None)
  Receive Date: 20050222
  Receipt Date: 20050222
  Transmission Date: 20050727
  Serious: Yes (Hospitalization)
  Sender: FDA-Public Use
  Company Number: None

PATIENT
  Age: 59 Year
  Sex: Female

DRUGS (1)
  1. DULOXETINE [Suspect]
     Dosage: PO

REACTIONS (9)
  - ASTHENIA [None]
  - DEHYDRATION [None]
  - DIZZINESS [None]
  - DRUG HALF-LIFE INCREASED [None]
  - HYPERCAPNIA [None]
  - NAUSEA [None]
  - RENAL FAILURE [None]
  - RESPIRATORY FAILURE [None]
  - VOMITING [None]
